FAERS Safety Report 7099330-7 (Version None)
Quarter: 2010Q4

REPORT INFORMATION
  Report Type: 
  Country: None (occurrence: None)
  Receive Date: 20101105
  Receipt Date: 20101026
  Transmission Date: 20110411
  Serious: Yes (Other)
  Sender: FDA-Public Use
  Company Number: 019223

PATIENT
  Sex: Female
  Weight: 80 kg

DRUGS (9)
  1. VIMPAT [Suspect]
     Indication: FRONTAL LOBE EPILEPSY
     Dosage: (50 MG BID ORAL), (100 MG BID ORAL), (PROGRESSIVE DECREASE OF DOSES ORAL)
     Route: 048
     Dates: start: 20100408, end: 20100514
  2. VIMPAT [Suspect]
     Indication: FRONTAL LOBE EPILEPSY
     Dosage: (50 MG BID ORAL), (100 MG BID ORAL), (PROGRESSIVE DECREASE OF DOSES ORAL)
     Route: 048
     Dates: start: 20100515, end: 20100630
  3. VIMPAT [Suspect]
     Indication: FRONTAL LOBE EPILEPSY
     Dosage: (50 MG BID ORAL), (100 MG BID ORAL), (PROGRESSIVE DECREASE OF DOSES ORAL)
     Route: 048
     Dates: start: 20100701, end: 20100727
  4. LAMICTAL [Concomitant]
  5. TEGRETOL [Concomitant]
  6. EQUANIL [Concomitant]
  7. DIAZEPAM [Concomitant]
  8. ARIPIPRAZOLE [Concomitant]
  9. TEGRETOL [Concomitant]

REACTIONS (5)
  - ABNORMAL BEHAVIOUR [None]
  - AGGRESSION [None]
  - BREATH ODOUR [None]
  - CONDITION AGGRAVATED [None]
  - GINGIVAL BLEEDING [None]
